FAERS Safety Report 5809512-7 (Version None)
Quarter: 2008Q3

REPORT INFORMATION
  Report Type: 
  Country: None (occurrence: None)
  Receive Date: 20080715
  Receipt Date: 20080703
  Transmission Date: 20090109
  Serious: Yes (Hospitalization)
  Sender: FDA-Public Use
  Company Number: NZ-ELI_LILLY_AND_COMPANY-NZ200807001543

PATIENT
  Age: 56 Year
  Sex: Male

DRUGS (17)
  1. XIGRIS [Suspect]
     Indication: SEPTIC SHOCK
     Dosage: 0.024 MG/KG/HOUR
     Route: 065
  2. CEFTRIAXONE [Concomitant]
     Dosage: UNK, UNKNOWN
     Route: 065
  3. GENTAMICIN [Concomitant]
     Dosage: UNK, UNKNOWN
     Route: 065
  4. QUININE SULPHATE [Concomitant]
     Indication: MALARIA
     Dosage: 2 MG/KG OVER 4 HOURS (LOADING DOSE)
     Route: 065
  5. HYDROCORTISONE [Concomitant]
     Dosage: UNK, UNKNOWN
     Route: 065
  6. FLUDROCORTISONE ACETATE [Concomitant]
     Dosage: UNK, UNKNOWN
     Route: 065
  7. NORADRENALINE [Concomitant]
     Dosage: 0.01 - 1.5 UG/KG/MIN
     Route: 065
  8. NORADRENALINE [Concomitant]
     Dosage: 1.5 UG/KG/MIN
     Route: 065
  9. VASOPRESSIN [Concomitant]
     Dosage: 1-6 U/H
     Route: 065
  10. VASOPRESSIN [Concomitant]
     Dosage: 6U/H
     Route: 065
  11. ADRENALINE [Concomitant]
     Dosage: 0.2 TO 0.5 UG/KG/MIN
  12. ADRENALINE [Concomitant]
     Dosage: 1MG BOLUSES WITH A TOTAL OF 5MG
     Route: 065
  13. ADRENALINE [Concomitant]
     Dosage: 10 UG/KG/MIN
     Route: 065
  14. ANTIMALARIALS [Concomitant]
     Dosage: UNK, UNKNOWN
     Route: 048
  15. PRIMAQUINE [Concomitant]
     Indication: MALARIA
     Dosage: UNK, UNKNOWN
     Route: 065
  16. PLATELETS [Concomitant]
     Dosage: UNK, UNKNOWN
     Route: 065
  17. PLASMA [Concomitant]
     Dosage: UNK, UNKNOWN
     Route: 065

REACTIONS (2)
  - LUNG INFECTION PSEUDOMONAL [None]
  - SUPRAVENTRICULAR TACHYCARDIA [None]
